FAERS Safety Report 7805582 (Version 18)
Quarter: 2014Q1

REPORT INFORMATION
  Report Type: Spontaneous
  Country: US (occurrence: US)
  Receive Date: 20110209
  Receipt Date: 20140326
  Transmission Date: 20141002
  Serious: Yes (Hospitalization, Other)
  Sender: FDA-Public Use
  Company Number: PHEH2011US00446

PATIENT
  Sex: Male
  Weight: 96.15 kg

DRUGS (16)
  1. ZYTIGA [Suspect]
     Indication: HORMONE-REFRACTORY PROSTATE CANCER
  2. VIAGRA [Concomitant]
  3. PALONOSETRON [Concomitant]
  4. DEXAMETHASONE [Concomitant]
  5. RANITIDINE [Concomitant]
  6. PREDNISONE [Concomitant]
     Dosage: 10 MG, QD
  7. LUPRON [Concomitant]
     Indication: HORMONE-REFRACTORY PROSTATE CANCER
  8. FENTANYL [Concomitant]
     Dosage: 1 DF, EVERY THREE DAYS
     Route: 048
  9. HYDROCODONE W/ACETAMINOPHEN [Concomitant]
     Dosage: 10 MG HYDROCODONE AND 325 MG ACETAMINOPHEN
     Route: 048
  10. ZOSTRIX [Concomitant]
  11. LYRICA [Concomitant]
     Dosage: 1 DF, TID
  12. SOLU-MEDROL [Concomitant]
  13. JEVTANA [Concomitant]
     Route: 041
  14. TAXOTERE [Concomitant]
  15. DILAUDID [Concomitant]
     Dosage: 4 MG,
  16. ZOMETA [Suspect]
     Indication: PROSTATE CANCER
     Dosage: 4 MG, QMO
     Route: 042

REACTIONS (90)
  - Febrile neutropenia [Unknown]
  - Leukopenia [Unknown]
  - Pyrexia [Unknown]
  - Neoplasm progression [Unknown]
  - Malignant neoplasm progression [Unknown]
  - Metastases to spine [Unknown]
  - Bone neoplasm [Not Recovered/Not Resolved]
  - Prostatic specific antigen increased [Unknown]
  - Metastases to bone marrow [Unknown]
  - Osteosclerosis [Unknown]
  - Neuropathy peripheral [Unknown]
  - Varicella [Unknown]
  - Osteonecrosis of jaw [Unknown]
  - Injury [Unknown]
  - Disability [Unknown]
  - Pain [Unknown]
  - Anxiety [Unknown]
  - Decreased interest [Unknown]
  - Hypertension [Unknown]
  - Lymphadenopathy [Unknown]
  - Compression fracture [Unknown]
  - Spinal cord compression [Unknown]
  - Haemorrhage [Unknown]
  - Aortic arteriosclerosis [Unknown]
  - Atelectasis [Unknown]
  - Skin lesion [Unknown]
  - Intervertebral disc degeneration [Unknown]
  - Depression [Unknown]
  - Nephrolithiasis [Unknown]
  - Rheumatoid arthritis [Unknown]
  - Pulmonary embolism [Unknown]
  - Cardiac murmur [Unknown]
  - Spinal column stenosis [Unknown]
  - Bone lesion [Unknown]
  - Diarrhoea [Unknown]
  - Tooth disorder [Unknown]
  - Bone pain [Unknown]
  - Chest pain [Unknown]
  - Hepatic steatosis [Unknown]
  - Arthralgia [Unknown]
  - Neutropenia [Unknown]
  - Diverticulum intestinal [Unknown]
  - Back pain [Unknown]
  - Constipation [Unknown]
  - Oedema [Unknown]
  - Abdominal pain upper [Unknown]
  - Erectile dysfunction [Unknown]
  - Arteriosclerosis coronary artery [Unknown]
  - Aortic calcification [Unknown]
  - Joint swelling [Unknown]
  - Metastases to bone [Unknown]
  - Spinal osteoarthritis [Unknown]
  - Pancytopenia [Unknown]
  - Hepatic cyst [Unknown]
  - Musculoskeletal pain [Unknown]
  - Pain in extremity [Not Recovered/Not Resolved]
  - Fatigue [Unknown]
  - Gait disturbance [Unknown]
  - Nausea [Unknown]
  - Vomiting [Unknown]
  - Spinal disorder [Unknown]
  - Incontinence [Unknown]
  - Hypoaesthesia [Unknown]
  - Proctalgia [Unknown]
  - Soft tissue neoplasm [Unknown]
  - Inguinal hernia [Unknown]
  - Metastases to pelvis [Unknown]
  - Vertebral foraminal stenosis [Unknown]
  - Local swelling [Unknown]
  - Rash maculo-papular [Unknown]
  - Urinary incontinence [Unknown]
  - Extradural neoplasm [Unknown]
  - Bladder outlet obstruction [Unknown]
  - Urinary retention [Unknown]
  - Cellulitis [Unknown]
  - Cancer pain [Unknown]
  - Cystitis noninfective [Unknown]
  - Pathological fracture [Unknown]
  - Hydronephrosis [Unknown]
  - Paraplegia [Unknown]
  - Abdominal distension [Unknown]
  - Abdominal tenderness [Unknown]
  - Dysuria [Unknown]
  - Gastrointestinal motility disorder [Unknown]
  - Radicular pain [Unknown]
  - Asthenia [Unknown]
  - Weight decreased [Unknown]
  - Nocturia [Unknown]
  - Paraesthesia [Unknown]
  - Skin ulcer [Unknown]
